FAERS Safety Report 11757373 (Version 1)
Quarter: 2015Q4

REPORT INFORMATION
  Report Type: Spontaneous
  Country: US (occurrence: US)
  Receive Date: 20151120
  Receipt Date: 20151120
  Transmission Date: 20160304
  Serious: Yes (Other)
  Sender: FDA-Public Use
  Company Number: US-ASTRAZENECA-2015SF11971

PATIENT
  Sex: Male

DRUGS (1)
  1. SEROQUEL [Suspect]
     Active Substance: QUETIAPINE FUMARATE
     Indication: INSOMNIA
     Dosage: 500
     Route: 048

REACTIONS (10)
  - Scleroderma [Unknown]
  - Tardive dyskinesia [Unknown]
  - Akathisia [Unknown]
  - Poor peripheral circulation [Unknown]
  - Psoriatic arthropathy [Unknown]
  - Muscle atrophy [Unknown]
  - Weight increased [Unknown]
  - Cerebrovascular accident [Unknown]
  - Visual impairment [Unknown]
  - Amnesia [Unknown]
